FAERS Safety Report 23692823 (Version 2)
Quarter: 2024Q4

REPORT INFORMATION
  Report Type: Spontaneous
  Country: CA (occurrence: CA)
  Receive Date: 20240401
  Receipt Date: 20241003
  Transmission Date: 20250115
  Serious: Yes (Other)
  Sender: PFIZER
  Company Number: CA-PFIZER INC-202300024670

PATIENT
  Age: 80 Year
  Sex: Male

DRUGS (14)
  1. RUXIENCE [Interacting]
     Active Substance: RITUXIMAB-PVVR
     Indication: Granulomatosis with polyangiitis
     Dosage: 500 MG, EVERY 6 MONTH (DAY 1 AND DAY 15)
     Route: 042
     Dates: start: 20230127
  2. RUXIENCE [Interacting]
     Active Substance: RITUXIMAB-PVVR
     Indication: Microscopic polyangiitis
     Dosage: 500 MG, EVERY 6 MONTH (DAY 1 AND DAY 15)
     Route: 042
     Dates: start: 20230210
  3. RUXIENCE [Interacting]
     Active Substance: RITUXIMAB-PVVR
     Dosage: 500 MG X 1 DOSE EVERY 6 MONTHS [500 MG, DAY 1 (RETREATMENT)]
     Route: 042
     Dates: start: 20230929, end: 20230929
  4. RUXIENCE [Interacting]
     Active Substance: RITUXIMAB-PVVR
     Dosage: 500 MG X 1 DOSE EVERY 6 MONTHS
     Route: 042
     Dates: start: 20240327
  5. RUXIENCE [Interacting]
     Active Substance: RITUXIMAB-PVVR
     Dosage: 500 MG, ONE DOSE OF RETREATMENT (EVERY 6 MONTHS)
     Route: 042
     Dates: start: 20240927
  6. BISOPROLOL [Concomitant]
     Active Substance: BISOPROLOL\BISOPROLOL FUMARATE
     Dosage: UNK
  7. CANDESARTAN [Concomitant]
     Active Substance: CANDESARTAN
     Dosage: UNK
  8. CLOPIDOGREL [Concomitant]
     Active Substance: CLOPIDOGREL BISULFATE
     Dosage: UNK
  9. CRESTOR [Concomitant]
     Active Substance: ROSUVASTATIN CALCIUM
     Dosage: UNK
  10. DUTASTERIDE [Concomitant]
     Active Substance: DUTASTERIDE
     Dosage: UNK
  11. PANTOPRAZOLE [Concomitant]
     Active Substance: PANTOPRAZOLE
     Dosage: UNK
  12. PREDNISONE [Concomitant]
     Active Substance: PREDNISONE
     Dosage: UNK
  13. RIFAMPIN [Concomitant]
     Active Substance: RIFAMPIN
     Dosage: UNK
  14. RISEDRONATE SODIUM [Concomitant]
     Active Substance: RISEDRONATE SODIUM
     Dosage: UNK

REACTIONS (5)
  - Pulmonary fibrosis [Unknown]
  - Antineutrophil cytoplasmic antibody positive [Unknown]
  - Food interaction [Not Recovered/Not Resolved]
  - Off label use [Unknown]
  - Incorrect product administration duration [Unknown]

NARRATIVE: CASE EVENT DATE: 20230101
